FAERS Safety Report 12395482 (Version 4)
Quarter: 2017Q1

REPORT INFORMATION
  Report Type: Spontaneous
  Country: US (occurrence: US)
  Receive Date: 20160523
  Receipt Date: 20170227
  Transmission Date: 20170428
  Serious: Yes (Hospitalization, Disabling, Other)
  Sender: FDA-Public Use
  Company Number: US-MYLANLABS-2016M1020507

PATIENT

DRUGS (4)
  1. LITHIUM. [Concomitant]
     Active Substance: LITHIUM
     Dosage: UNK
  2. AMBIEN [Concomitant]
     Active Substance: ZOLPIDEM TARTRATE
     Indication: INSOMNIA
     Dosage: UNK
  3. KLONOPIN [Concomitant]
     Active Substance: CLONAZEPAM
     Dosage: UNK
  4. PANTOPRAZOLE SODIUM DELAYED-RELEASE TABLETS, USP [Suspect]
     Active Substance: PANTOPRAZOLE SODIUM
     Indication: GASTROOESOPHAGEAL REFLUX DISEASE
     Dosage: 40 MG, QD
     Route: 048
     Dates: start: 20160208, end: 201605

REACTIONS (7)
  - Feeling abnormal [Recovered/Resolved]
  - Laceration [Recovered/Resolved]
  - Mental disorder [Not Recovered/Not Resolved]
  - Generalised tonic-clonic seizure [Recovered/Resolved]
  - Fall [Recovered/Resolved]
  - Loss of consciousness [Recovered/Resolved]
  - Amnesia [Not Recovered/Not Resolved]

NARRATIVE: CASE EVENT DATE: 201605
